FAERS Safety Report 20492204 (Version 2)
Quarter: 2022Q3

REPORT INFORMATION
  Report Type: Spontaneous
  Country: US (occurrence: US)
  Receive Date: 20220218
  Receipt Date: 20220826
  Transmission Date: 20221027
  Serious: Yes (Hospitalization, Other)
  Sender: FDA-Public Use
  Company Number: US-PFIZER INC-202200284238

PATIENT
  Age: 59 Year
  Sex: Female

DRUGS (1)
  1. XELJANZ XR [Suspect]
     Active Substance: TOFACITINIB CITRATE
     Indication: Rheumatoid arthritis
     Dosage: 11 MG, DAILY
     Route: 048
     Dates: start: 20170906

REACTIONS (5)
  - Pulmonary embolism [Unknown]
  - Tachycardia [Unknown]
  - Arthralgia [Unknown]
  - Palpitations [Unknown]
  - Chest discomfort [Unknown]

NARRATIVE: CASE EVENT DATE: 20180910
